FAERS Safety Report 7675595-5 (Version None)
Quarter: 2011Q3

REPORT INFORMATION
  Report Type: 
  Country: None (occurrence: None)
  Receive Date: 20110810
  Receipt Date: 20110802
  Transmission Date: 20111222
  Serious: Yes (Other)
  Sender: FDA-Public Use
  Company Number: GB-CEPHALON-2011004054

PATIENT
  Sex: Female

DRUGS (3)
  1. MYLOTARG [Suspect]
     Indication: ACUTE MYELOID LEUKAEMIA
     Dates: start: 20110718
  2. ATRACURIUM BESYLATE [Suspect]
     Indication: ACUTE MYELOID LEUKAEMIA
     Dates: start: 20110715, end: 20110718
  3. TRISENOX [Suspect]
     Indication: ACUTE MYELOID LEUKAEMIA
     Dates: start: 20110718, end: 20110729

REACTIONS (2)
  - GAMMA-GLUTAMYLTRANSFERASE INCREASED [None]
  - ALANINE AMINOTRANSFERASE INCREASED [None]
